FAERS Safety Report 15301184 (Version 1)
Quarter: 2018Q3

REPORT INFORMATION
  Report Type: Spontaneous
  Country: US (occurrence: US)
  Receive Date: 20180809
  Receipt Date: 20180809
  Transmission Date: 20181010
  Serious: No
  Sender: FDA-Public Use
  Company Number: None

PATIENT
  Sex: Female

DRUGS (18)
  1. OCALIVA [Suspect]
     Active Substance: OBETICHOLIC ACID
     Indication: PRIMARY BILIARY CHOLANGITIS
     Route: 048
     Dates: start: 20170927
  2. OMEGA 3 [Concomitant]
     Active Substance: OMEGA-3 FATTY ACIDS
  3. ALPRAZOLAM. [Concomitant]
     Active Substance: ALPRAZOLAM
  4. LIDODERM [Concomitant]
     Active Substance: LIDOCAINE
  5. ATACAND [Concomitant]
     Active Substance: CANDESARTAN CILEXETIL
  6. HYDROCODONE [Concomitant]
     Active Substance: HYDROCODONE
  7. VITAMIN D3 [Concomitant]
     Active Substance: CHOLECALCIFEROL
  8. ACTIGALL [Concomitant]
     Active Substance: URSODIOL
  9. CLOBETASOL [Concomitant]
     Active Substance: CLOBETASOL
  10. RAYOS [Concomitant]
     Active Substance: PREDNISONE
  11. PREMARIN [Concomitant]
     Active Substance: ESTROGENS, CONJUGATED
  12. B6 NATURAL [Concomitant]
  13. ARMOUR THYROID [Concomitant]
     Active Substance: THYROID, PORCINE
  14. PANTOPRAZOLE [Concomitant]
     Active Substance: PANTOPRAZOLE
  15. ATENOLOL. [Concomitant]
     Active Substance: ATENOLOL
  16. MYRBETRIQ [Concomitant]
     Active Substance: MIRABEGRON
  17. BACLOFEN. [Concomitant]
     Active Substance: BACLOFEN
  18. LYRICA [Concomitant]
     Active Substance: PREGABALIN

REACTIONS (2)
  - Spinal disorder [None]
  - Unevaluable event [None]
